FAERS Safety Report 14852968 (Version 1)
Quarter: 2018Q2

REPORT INFORMATION
  Report Type: Report from Study
  Country: US (occurrence: US)
  Receive Date: 20180507
  Receipt Date: 20180507
  Transmission Date: 20180711
  Serious: No
  Sender: FDA-Public Use
  Company Number: US-AMGEN-USASP2018051068

PATIENT
  Age: 65 Year
  Sex: Female

DRUGS (2)
  1. REPATHA [Suspect]
     Active Substance: EVOLOCUMAB
     Indication: TYPE IIA HYPERLIPIDAEMIA
     Dosage: 140 MG, Q2WK
     Route: 065
     Dates: start: 20180404
  2. REPATHA [Suspect]
     Active Substance: EVOLOCUMAB
     Indication: BLOOD CHOLESTEROL INCREASED

REACTIONS (8)
  - Cough [Not Recovered/Not Resolved]
  - Influenza like illness [Unknown]
  - Blood pressure increased [Unknown]
  - Back pain [Unknown]
  - Rhinorrhoea [Not Recovered/Not Resolved]
  - Upper-airway cough syndrome [Not Recovered/Not Resolved]
  - Muscle tightness [Unknown]
  - Dyspnoea [Unknown]

NARRATIVE: CASE EVENT DATE: 201804
